FAERS Safety Report 5974315-X (Version None)
Quarter: 2008Q4

REPORT INFORMATION
  Report Type: 
  Country: None (occurrence: None)
  Receive Date: 20081201
  Receipt Date: 20081128
  Transmission Date: 20090506
  Serious: Yes (Other)
  Sender: FDA-Public Use
  Company Number: AT-PFIZER INC-2008087822

PATIENT
  Sex: Male
  Weight: 69 kg

DRUGS (3)
  1. CHAMPIX [Suspect]
     Indication: SMOKING CESSATION THERAPY
     Route: 048
     Dates: start: 20080716, end: 20081014
  2. SYMBICORT [Concomitant]
  3. OXIS [Concomitant]

REACTIONS (3)
  - DEPRESSED MOOD [None]
  - PANIC ATTACK [None]
  - TREMOR [None]
